FAERS Safety Report 24295733 (Version 1)
Quarter: 2024Q3

REPORT INFORMATION
  Report Type: Report from Study
  Country: US (occurrence: US)
  Receive Date: 20240908
  Receipt Date: 20240908
  Transmission Date: 20241017
  Serious: Yes (Life-Threatening)
  Sender: JOHNSON AND JOHNSON
  Company Number: US-JNJFOC-20240912182

PATIENT
  Age: 5 Decade
  Sex: Male

DRUGS (1)
  1. SPRAVATO [Suspect]
     Active Substance: ESKETAMINE
     Indication: Depression
     Dosage: ^^84 MG, 23 TOTAL DOSES^^
     Dates: start: 20231024, end: 20240813

REACTIONS (2)
  - Suicidal ideation [Unknown]
  - Anxiety [Unknown]
